FAERS Safety Report 5866479-3 (Version None)
Quarter: 2008Q3

REPORT INFORMATION
  Report Type: 
  Country: None (occurrence: None)
  Receive Date: 20080902
  Receipt Date: 20080902
  Transmission Date: 20090109
  Serious: Yes (Hospitalization)
  Sender: FDA-Public Use
  Company Number: PHEH1995US02761

PATIENT
  Sex: Female
  Weight: 97.3 kg

DRUGS (11)
  1. SANDIMMUNE [Suspect]
     Route: 048
     Dates: start: 19950323
  2. AZATHIOPRINE [Concomitant]
  3. PEPCID [Concomitant]
  4. ASPIRIN [Concomitant]
  5. ACTIGALL [Concomitant]
  6. SYNTHROID [Concomitant]
  7. SOLU-MEDROL [Concomitant]
  8. LASIX [Concomitant]
  9. MAGNESIUM GLUCONATE (MAGNESIUM GLUCONATE) [Concomitant]
  10. MYCELEX TROCRE (CLOTRIMAZOLE) [Concomitant]
  11. REGULAR INSULIN [Concomitant]

REACTIONS (3)
  - BODY TEMPERATURE INCREASED [None]
  - CONFUSIONAL STATE [None]
  - DISORIENTATION [None]
